FAERS Safety Report 9785289 (Version 4)
Quarter: 2014Q2

REPORT INFORMATION
  Report Type: Spontaneous
  Country: US (occurrence: US)
  Receive Date: 20131227
  Receipt Date: 20140409
  Transmission Date: 20141212
  Serious: Yes (Hospitalization)
  Sender: FDA-Public Use
  Company Number: US-B.I. PHARMACEUTICALS,INC./RIDGEFIELD-2013-BI-43304BP

PATIENT
  Age: 66 Year
  Sex: Male
  Weight: 108.86 kg

DRUGS (17)
  1. PRADAXA [Suspect]
     Indication: ANTICOAGULANT THERAPY
     Dosage: 300 MG
     Route: 048
     Dates: start: 20130623, end: 20130812
  2. PRADAXA [Suspect]
     Indication: THROMBOSIS PROPHYLAXIS
  3. CETIRIZINE [Concomitant]
     Route: 065
     Dates: start: 2002
  4. DIGOXIN [Concomitant]
     Route: 065
     Dates: start: 2005
  5. DIGOXIN [Concomitant]
     Dosage: STRENGTH: 0.25
     Route: 065
  6. DIGOXIN [Concomitant]
     Dosage: STRENGTH: 0.125
     Route: 065
  7. HYDROCODONE-APAP [Concomitant]
     Route: 065
     Dates: start: 2005
  8. K-DUR [Concomitant]
     Route: 065
  9. METHOCARBAMOL [Concomitant]
     Route: 065
     Dates: start: 2009
  10. MIRTAZAPINE [Concomitant]
     Route: 065
     Dates: start: 1998
  11. PROMETHAZINE [Concomitant]
     Route: 065
     Dates: start: 1998
  12. SIMVASTATIN [Concomitant]
     Route: 065
     Dates: start: 2000
  13. TRAZODONE [Concomitant]
     Route: 065
     Dates: start: 2006
  14. VALIUM [Concomitant]
     Route: 065
     Dates: start: 1995
  15. VITAMIN B COMPLEX [Concomitant]
     Route: 065
     Dates: start: 2004
  16. NEURONTIN [Concomitant]
     Route: 065
  17. SIMVASTATIN [Concomitant]
     Route: 065

REACTIONS (4)
  - Upper gastrointestinal haemorrhage [Unknown]
  - Haemorrhagic anaemia [Unknown]
  - Coagulopathy [Unknown]
  - Syncope [Unknown]
